FAERS Safety Report 19820739 (Version 1)
Quarter: 2021Q3

REPORT INFORMATION
  Report Type: Spontaneous
  Country: US (occurrence: US)
  Receive Date: 20210910
  Receipt Date: 20210910
  Transmission Date: 20211014
  Serious: No
  Sender: FDA-Public Use
  Company Number: None

PATIENT
  Age: 96 Year
  Sex: Male

DRUGS (1)
  1. DILTIAZEM (DILTIAZEM HCL 1MG/ML/DEXTROSE 5% INJ,BAG,125ML) [Suspect]
     Active Substance: DILTIAZEM HYDROCHLORIDE
     Indication: ATRIAL FIBRILLATION
     Dates: start: 20210808, end: 20210808

REACTIONS (1)
  - Cardiogenic shock [None]

NARRATIVE: CASE EVENT DATE: 20210808
